FAERS Safety Report 24897392 (Version 1)
Quarter: 2025Q1

REPORT INFORMATION
  Report Type: Spontaneous
  Country: GB (occurrence: GB)
  Receive Date: 20250129
  Receipt Date: 20250129
  Transmission Date: 20250409
  Serious: Yes (Other)
  Sender: AMGEN
  Company Number: GB-AMGEN-GBRSP2025014706

PATIENT
  Sex: Male

DRUGS (1)
  1. ARANESP [Suspect]
     Active Substance: DARBEPOETIN ALFA
     Indication: Renal transplant
     Dosage: 100 MICROGRAM, Q2WK (STRENGTH 1 00MCG/0.5ML)
     Route: 058
     Dates: start: 20221109, end: 20250122

REACTIONS (1)
  - Renal disorder [Unknown]
